FAERS Safety Report 24180804 (Version 1)
Quarter: 2024Q3

REPORT INFORMATION
  Report Type: Other
  Country: RU (occurrence: RU)
  Receive Date: 20240806
  Receipt Date: 20240806
  Transmission Date: 20241017
  Serious: Yes (Hospitalization)
  Sender: GLENMARK
  Company Number: RU-GLENMARK PHARMACEUTICALS-2024GMK092687

PATIENT

DRUGS (1)
  1. CLOTRIMAZOLE [Suspect]
     Active Substance: CLOTRIMAZOLE
     Indication: Oral candidiasis
     Dosage: UNK (ORAL DROPS)
     Route: 048
     Dates: start: 20240625, end: 20240625

REACTIONS (2)
  - Oropharyngeal oedema [Recovering/Resolving]
  - Dysphonia [Recovering/Resolving]

NARRATIVE: CASE EVENT DATE: 20240625
